FAERS Safety Report 4654006-8 (Version None)
Quarter: 2005Q2

REPORT INFORMATION
  Report Type: 
  Country: None (occurrence: None)
  Receive Date: 20050504
  Receipt Date: 20050421
  Transmission Date: 20051028
  Serious: Yes (Other)
  Sender: FDA-Public Use
  Company Number: L05-LKA-01421-01

PATIENT
  Age: 65 Year
  Sex: Male

DRUGS (5)
  1. DILTIAZEM [Suspect]
     Indication: HYPERCHOLESTEROLAEMIA
     Dosage: 30 MG TID
  2. DILTIAZEM [Suspect]
     Indication: MYOCARDIAL ISCHAEMIA
     Dosage: 30 MG TID
  3. ATENOLOL [Concomitant]
  4. ASPIRIN [Concomitant]
  5. LOVASTATIN [Concomitant]

REACTIONS (3)
  - CACHEXIA [None]
  - EATON-LAMBERT SYNDROME [None]
  - MYOSITIS [None]
